FAERS Safety Report 5596829-7 (Version None)
Quarter: 2008Q1

REPORT INFORMATION
  Report Type: 
  Country: None (occurrence: None)
  Receive Date: 20080119
  Receipt Date: 20080109
  Transmission Date: 20080703
  Serious: Yes (Other)
  Sender: FDA-Public Use
  Company Number: US-PFIZER INC-2008003970

PATIENT
  Sex: Male
  Weight: 86.2 kg

DRUGS (6)
  1. DILANTIN [Interacting]
     Indication: CONVULSION
  2. DILANTIN [Interacting]
  3. PHENYTOIN SODIUM [Suspect]
     Dosage: TEXT:100 MG
  4. LEVAQUIN [Interacting]
     Indication: SINUSITIS
  5. LORATADINE [Concomitant]
  6. PRILOSEC [Concomitant]

REACTIONS (4)
  - CONVULSION [None]
  - DRUG INTERACTION [None]
  - NEUROPATHY PERIPHERAL [None]
  - SINUSITIS [None]
